FAERS Safety Report 6318054-4 (Version None)
Quarter: 2009Q3

REPORT INFORMATION
  Report Type: 
  Country: None (occurrence: None)
  Receive Date: 20090821
  Receipt Date: 20090813
  Transmission Date: 20100115
  Serious: Yes (Other)
  Sender: FDA-Public Use
  Company Number: US-NOVOPROD-279818

PATIENT
  Age: 64 Year
  Sex: Male
  Weight: 63.492 kg

DRUGS (1)
  1. NORDITROPIN NORDIFLEX [Suspect]
     Indication: HEPATITIS C
     Dosage: UNKNOWN
     Route: 058
     Dates: start: 20000101

REACTIONS (1)
  - INJECTION SITE ABSCESS [None]
